FAERS Safety Report 4696422-4 (Version None)
Quarter: 2005Q2

REPORT INFORMATION
  Report Type: 
  Country: None (occurrence: None)
  Receive Date: 20050613
  Receipt Date: 20050512
  Transmission Date: 20051028
  Serious: Yes (Other)
  Sender: FDA-Public Use
  Company Number: 404687

PATIENT
  Age: 57 Year
  Sex: Female

DRUGS (2)
  1. BONIVA [Suspect]
     Dosage: 150 MG 1 PER 1 MONTH ORAL
     Route: 048
     Dates: start: 20050512
  2. NORVASC [Concomitant]

REACTIONS (1)
  - HYPERTENSION [None]
